FAERS Safety Report 26205695 (Version 1)
Quarter: 2025Q4

REPORT INFORMATION
  Report Type: Spontaneous
  Country: US (occurrence: US)
  Receive Date: 20251229
  Receipt Date: 20251229
  Transmission Date: 20260118
  Serious: No
  Sender: JOHNSON AND JOHNSON
  Company Number: US-JNJFOC-20251208405

PATIENT
  Sex: Female

DRUGS (1)
  1. RYBREVANT [Suspect]
     Active Substance: AMIVANTAMAB-VMJW
     Indication: Product used for unknown indication

REACTIONS (5)
  - White blood cell count decreased [Unknown]
  - Stomatitis [Unknown]
  - Red blood cell count decreased [Unknown]
  - Feeding disorder [Unknown]
  - Platelet count decreased [Unknown]
